FAERS Safety Report 21738616 (Version 1)
Quarter: 2022Q4

REPORT INFORMATION
  Report Type: Spontaneous
  Country: US (occurrence: None)
  Receive Date: 20221215
  Receipt Date: 20221215
  Transmission Date: 20230113
  Serious: Yes (Hospitalization)
  Sender: FDA-Public Use
  Company Number: None

PATIENT
  Age: 62 Year
  Sex: Male

DRUGS (1)
  1. LEVOFLOXACIN [Suspect]
     Active Substance: LEVOFLOXACIN
     Dosage: FREQUENCY : DAILY;?
     Route: 048
     Dates: start: 20221124, end: 20221125

REACTIONS (11)
  - Swollen tongue [None]
  - Hallucination [None]
  - Palpitations [None]
  - Night sweats [None]
  - Urinary tract infection [None]
  - Acute kidney injury [None]
  - Angioedema [None]
  - Angina pectoris [None]
  - Vertigo [None]
  - Insomnia [None]
  - Asthenia [None]

NARRATIVE: CASE EVENT DATE: 20221125
